FAERS Safety Report 5164611-0 (Version None)
Quarter: 2006Q4

REPORT INFORMATION
  Report Type: 
  Country: None (occurrence: None)
  Receive Date: 20061205
  Receipt Date: 20061124
  Transmission Date: 20070319
  Serious: Yes (Other)
  Sender: FDA-Public Use
  Company Number: 2006AP05637

PATIENT
  Age: 36 Year
  Sex: Female

DRUGS (1)
  1. DIPRIVAN [Suspect]
     Route: 042
     Dates: start: 20061124, end: 20061124

REACTIONS (1)
  - URTICARIA [None]
